FAERS Safety Report 5514693-9 (Version None)
Quarter: 2007Q4

REPORT INFORMATION
  Report Type: 
  Country: None (occurrence: None)
  Receive Date: 20071113
  Receipt Date: 20071101
  Transmission Date: 20080405
  Serious: Yes (Other)
  Sender: FDA-Public Use
  Company Number: US-PFIZER INC-2007092410

PATIENT
  Sex: Male
  Weight: 79.4 kg

DRUGS (5)
  1. NEURONTIN [Suspect]
     Indication: HYPOAESTHESIA
  2. NEURONTIN [Suspect]
     Indication: MUSCULOSKELETAL STIFFNESS
  3. GABAPENTIN [Suspect]
     Indication: HYPOAESTHESIA
  4. GABAPENTIN [Suspect]
     Indication: MUSCULOSKELETAL STIFFNESS
  5. METHADONE HCL [Suspect]
     Indication: PAIN

REACTIONS (2)
  - DRUG INEFFECTIVE [None]
  - MYOSITIS [None]
